FAERS Safety Report 5494099-1 (Version None)
Quarter: 2007Q4

REPORT INFORMATION
  Report Type: 
  Country: None (occurrence: None)
  Receive Date: 20071022
  Receipt Date: 20071008
  Transmission Date: 20080405
  Serious: Yes (Death, Other)
  Sender: FDA-Public Use
  Company Number: 2007333193

PATIENT
  Age: 3 Month
  Sex: Male
  Weight: 3.6 kg

DRUGS (5)
  1. PSEUDOEPHEDRINE HCL [Suspect]
  2. DEXTROMETHROPHAN (DEXTROMETHORPHAN) [Suspect]
  3. ACETAMINOPHEN [Suspect]
  4. DOXYLAMINE SUCCINATE [Suspect]
  5. NYSTATIN [Concomitant]

REACTIONS (3)
  - ANOXIC ENCEPHALOPATHY [None]
  - DRUG TOXICITY [None]
  - LOWER LIMB FRACTURE [None]
